FAERS Safety Report 6608800-4 (Version None)
Quarter: 2010Q1

REPORT INFORMATION
  Report Type: 
  Country: None (occurrence: None)
  Receive Date: 20100224
  Receipt Date: 20100224
  Transmission Date: 20100710
  Serious: No
  Sender: FDA-Public Use
  Company Number: None

PATIENT
  Age: 19 Year
  Sex: Female
  Weight: 63.5036 kg

DRUGS (10)
  1. CARBAMAZEPINE [Suspect]
     Dosage: 600MG BID ORAL
     Route: 048
  2. METFORMIN HYDROCHLORIDE [Concomitant]
  3. CLONAZEPAM [Concomitant]
  4. SEROQUEL [Concomitant]
  5. TRICOR [Concomitant]
  6. RISPERIDONE [Concomitant]
  7. RISP CONSTA [Concomitant]
  8. FAMOTIDINE [Concomitant]
  9. DIPHENHYDRAMINE [Concomitant]
  10. OLANZAPINE [Concomitant]

REACTIONS (1)
  - NEUTROPHIL COUNT DECREASED [None]
